FAERS Safety Report 14175562 (Version 1)
Quarter: 2017Q4

REPORT INFORMATION
  Report Type: Spontaneous
  Country: IL (occurrence: IL)
  Receive Date: 20171109
  Receipt Date: 20171109
  Transmission Date: 20180321
  Serious: Yes (Hospitalization, Other)
  Sender: FDA-Public Use
  Company Number: IL-BAYER-2017-211323

PATIENT
  Age: 31 Year
  Sex: Female

DRUGS (3)
  1. PEMBROLIZUMAB. [Concomitant]
     Active Substance: PEMBROLIZUMAB
     Dosage: UNK
     Dates: start: 20171031
  2. NEXAVAR [Suspect]
     Active Substance: SORAFENIB
     Indication: HEPATOCELLULAR CARCINOMA
     Dosage: UNK
  3. NEXAVAR [Suspect]
     Active Substance: SORAFENIB
     Indication: HEPATOCELLULAR CARCINOMA
     Dosage: UNK
     Dates: start: 20151101, end: 201606

REACTIONS (9)
  - Rash [Recovered/Resolved]
  - Exposure during pregnancy [Recovered/Resolved]
  - Hepatocellular carcinoma [None]
  - Skin exfoliation [Recovered/Resolved]
  - Dysphonia [None]
  - Skin reaction [Recovered/Resolved]
  - Hair disorder [None]
  - Hypokalaemia [None]
  - Hair dye user [None]

NARRATIVE: CASE EVENT DATE: 20160208
